FAERS Safety Report 6180521-4 (Version None)
Quarter: 2009Q2

REPORT INFORMATION
  Report Type: 
  Country: None (occurrence: None)
  Receive Date: 20090504
  Receipt Date: 20090504
  Transmission Date: 20091009
  Serious: Yes (Other)
  Sender: FDA-Public Use
  Company Number: None

PATIENT
  Sex: Male
  Weight: 18.1439 kg

DRUGS (1)
  1. SINGULAIR [Suspect]
     Indication: ASTHMA
     Dosage: QHS PO
     Route: 048
     Dates: start: 20061101, end: 20080801

REACTIONS (3)
  - AGITATION [None]
  - ANXIETY [None]
  - UNDERWEIGHT [None]
